FAERS Safety Report 7712468-3 (Version None)
Quarter: 2011Q3

REPORT INFORMATION
  Report Type: 
  Country: None (occurrence: None)
  Receive Date: 20110826
  Receipt Date: 20110826
  Transmission Date: 20111222
  Serious: Yes (Other)
  Sender: FDA-Public Use
  Company Number: None

PATIENT
  Age: 34 Year
  Sex: Female
  Weight: 58.967 kg

DRUGS (1)
  1. AVELOX [Suspect]
     Indication: SINUSITIS
     Dosage: 1 TABLET
     Route: 048
     Dates: start: 20110823, end: 20110824

REACTIONS (9)
  - DIZZINESS [None]
  - HALLUCINATION [None]
  - PANIC ATTACK [None]
  - PARANOIA [None]
  - TREMOR [None]
  - HEART RATE INCREASED [None]
  - THIRST [None]
  - NAUSEA [None]
  - ANXIETY [None]
